FAERS Safety Report 19894452 (Version 1)
Quarter: 2021Q3

REPORT INFORMATION
  Report Type: Spontaneous
  Country: US (occurrence: US)
  Receive Date: 20210928
  Receipt Date: 20210928
  Transmission Date: 20211014
  Serious: No
  Sender: FDA-Public Use
  Company Number: None

PATIENT

DRUGS (2)
  1. LEUCOVORIN CALCIUM. [Suspect]
     Active Substance: LEUCOVORIN CALCIUM
  2. METHOTREXATE TABLETS [Concomitant]
     Active Substance: METHOTREXATE

REACTIONS (3)
  - Product dose omission issue [None]
  - Wrong schedule [None]
  - Inappropriate schedule of product administration [None]
